FAERS Safety Report 15471033 (Version 3)
Quarter: 2018Q4

REPORT INFORMATION
  Report Type: Report from Study
  Country: US (occurrence: US)
  Receive Date: 20181006
  Receipt Date: 20181205
  Transmission Date: 20190205
  Serious: No
  Sender: FDA-Public Use
  Company Number: PHEH2018US040581

PATIENT
  Sex: Female

DRUGS (1)
  1. ENTRESTO [Suspect]
     Active Substance: SACUBITRIL\VALSARTAN
     Indication: CARDIAC FAILURE
     Dosage: UNK
     Route: 048
     Dates: start: 201801

REACTIONS (7)
  - Malaise [Unknown]
  - Cough [Unknown]
  - Hypotension [Unknown]
  - Nasopharyngitis [Recovered/Resolved]
  - Somnolence [Unknown]
  - Blood pressure fluctuation [Unknown]
  - Fatigue [Unknown]
